FAERS Safety Report 8307295-2 (Version None)
Quarter: 2012Q2

REPORT INFORMATION
  Report Type: 
  Country: None (occurrence: None)
  Receive Date: 20120424
  Receipt Date: 20120420
  Transmission Date: 20120825
  Serious: Yes (Life-Threatening)
  Sender: FDA-Public Use
  Company Number: FR-SANOFI-AVENTIS-2012SA027586

PATIENT
  Age: 83 Year
  Sex: Male

DRUGS (10)
  1. AMOXICILLIN [Concomitant]
     Indication: SEPSIS
     Dates: start: 20120323
  2. AMIODARONE HCL [Concomitant]
     Route: 048
  3. LEVOTHYROXINE SODIUM [Concomitant]
     Route: 048
  4. LOVENOX [Suspect]
     Route: 058
     Dates: start: 20120301, end: 20120403
  5. PREVISCAN [Concomitant]
     Route: 048
     Dates: end: 20120301
  6. POLYETHYLENE GLYCOL [Concomitant]
     Route: 048
     Dates: start: 20120323
  7. GENTAMICIN [Concomitant]
     Indication: SEPSIS
     Route: 051
     Dates: start: 20120323, end: 20120324
  8. REPAGLINIDE [Concomitant]
     Route: 048
  9. NOVORAPID [Concomitant]
     Route: 051
  10. LANTUS [Concomitant]
     Route: 051

REACTIONS (3)
  - ISCHAEMIC STROKE [None]
  - RETROPERITONEAL HAEMATOMA [None]
  - SHOCK HAEMORRHAGIC [None]
